FAERS Safety Report 16779698 (Version 2)
Quarter: 2019Q3

REPORT INFORMATION
  Report Type: Spontaneous
  Country: US (occurrence: US)
  Receive Date: 20190906
  Receipt Date: 20190923
  Transmission Date: 20191005
  Serious: Yes (Death, Life-Threatening, Hospitalization, Other)
  Sender: FDA-Public Use
  Company Number: US-ADVANZ PHARMA-201908000112

PATIENT

DRUGS (3)
  1. HYDROXYCHLOROQUINE SULFATE (AUTHORIZED GENERIC),PLAQUENIL [Suspect]
     Active Substance: HYDROXYCHLOROQUINE SULFATE
     Indication: PRODUCT USED FOR UNKNOWN INDICATION
     Dosage: APPROXIMATELY 60 TABLETS OF 200 MG X1
     Route: 048
  2. NAPROXEN. [Suspect]
     Active Substance: NAPROXEN
     Indication: PRODUCT USED FOR UNKNOWN INDICATION
     Dosage: SEVERAL 750 MG, 1X
     Route: 065
  3. IBUPROFEN. [Suspect]
     Active Substance: IBUPROFEN
     Indication: PRODUCT USED FOR UNKNOWN INDICATION
     Dosage: 200 MG
     Route: 065

REACTIONS (11)
  - Toxicity to various agents [Fatal]
  - Renal failure [Fatal]
  - Pupil fixed [Fatal]
  - Hypotension [Fatal]
  - Cardiotoxicity [Fatal]
  - Unresponsive to stimuli [Fatal]
  - Pulmonary oedema [Fatal]
  - Metabolic acidosis [Fatal]
  - Intentional overdose [Fatal]
  - Cardiac arrest [Fatal]
  - Hypokalaemia [Fatal]
